FAERS Safety Report 8591714-0 (Version None)
Quarter: 2012Q3

REPORT INFORMATION
  Report Type: 
  Country: None (occurrence: None)
  Receive Date: 20120814
  Receipt Date: 20120807
  Transmission Date: 20120928
  Serious: No
  Sender: FDA-Public Use
  Company Number: US-PFIZER INC-2012193421

PATIENT
  Age: 51 Year
  Sex: Female
  Weight: 49.887 kg

DRUGS (8)
  1. VYTORIN [Concomitant]
     Indication: BLOOD CHOLESTEROL INCREASED
     Dosage: 10/20 MG,DAILY
  2. LEXAPRO [Concomitant]
     Indication: DEPRESSION
     Dosage: 5 MG,DAILY
  3. LISINOPRIL AND HYDROCHLOROTHIAZIDE [Concomitant]
     Indication: HYPERTENSION
     Dosage: 12.5/20 MG DAILY
  4. TRAZODONE [Concomitant]
     Indication: SLEEP DISORDER
     Dosage: 150 MG,DAILY
  5. NEURONTIN [Suspect]
     Indication: FIBROMYALGIA
     Dosage: UNK
  6. NEURONTIN [Suspect]
     Indication: BIPOLAR DISORDER
     Dosage: 300 MG, UNK
  7. GABAPENTIN [Suspect]
     Dosage: 800MG IN THE MORNING AND 2X800MG TABLET IN THE EVENING
     Route: 048
  8. NEURONTIN [Suspect]
     Indication: AFFECTIVE DISORDER
     Dosage: 400 MG,DAILY
     Route: 048

REACTIONS (6)
  - HYPERHIDROSIS [None]
  - OFF LABEL USE [None]
  - NASOPHARYNGITIS [None]
  - HOT FLUSH [None]
  - WITHDRAWAL SYNDROME [None]
  - TREMOR [None]
